FAERS Safety Report 7156149-6 (Version None)
Quarter: 2010Q4

REPORT INFORMATION
  Report Type: 
  Country: None (occurrence: None)
  Receive Date: 20101214
  Receipt Date: 20101203
  Transmission Date: 20110411
  Serious: Yes (Other)
  Sender: FDA-Public Use
  Company Number: DE-NOVOPROD-290515

PATIENT
  Sex: Male
  Weight: 105 kg

DRUGS (2)
  1. NORDITROPIN [Suspect]
     Indication: GROWTH HORMONE DEFICIENCY
     Dosage: 8 MBQ, QD
     Route: 058
     Dates: start: 20040420, end: 20090801
  2. HYDROCORTISON                      /00028601/ [Concomitant]
     Indication: ADRENOCORTICAL STEROID THERAPY
     Dosage: 15 MG, QD
     Route: 048
     Dates: start: 20011001

REACTIONS (1)
  - PITUITARY TUMOUR BENIGN [None]
